FAERS Safety Report 10747443 (Version 1)
Quarter: 2015Q1

REPORT INFORMATION
  Report Type: Report from Study
  Country: US (occurrence: US)
  Receive Date: 20150129
  Receipt Date: 20150129
  Transmission Date: 20150721
  Serious: Yes (Hospitalization)
  Sender: FDA-Public Use
  Company Number: US-BIOGENIDEC-2014BI129738

PATIENT
  Age: 49 Year
  Sex: Male

DRUGS (2)
  1. AVONEX [Suspect]
     Active Substance: INTERFERON BETA-1A
     Indication: MULTIPLE SCLEROSIS
     Route: 030
     Dates: start: 20110924
  2. AVONEX [Suspect]
     Active Substance: INTERFERON BETA-1A
     Indication: MULTIPLE SCLEROSIS
     Route: 030
     Dates: start: 20110620, end: 20110817

REACTIONS (8)
  - Suicidal ideation [Unknown]
  - Blindness unilateral [Unknown]
  - Visual impairment [Unknown]
  - Insomnia [Unknown]
  - Schizophrenia [Unknown]
  - Cognitive disorder [Unknown]
  - Bipolar disorder [Unknown]
  - Depression [Unknown]
